FAERS Safety Report 8486724-8 (Version None)
Quarter: 2012Q3

REPORT INFORMATION
  Report Type: 
  Country: None (occurrence: None)
  Receive Date: 20120704
  Receipt Date: 20120626
  Transmission Date: 20120928
  Serious: Yes (Hospitalization)
  Sender: FDA-Public Use
  Company Number: US-BIOGENIDEC-2011BI038774

PATIENT
  Age: 52 Year
  Sex: Male
  Weight: 112 kg

DRUGS (25)
  1. TYSABRI [Suspect]
     Route: 042
     Dates: start: 20110111, end: 20110902
  2. CETIRIZINE [Concomitant]
     Route: 048
  3. WELLBUTRIN [Concomitant]
     Route: 048
  4. POTASSIUM CHLORIDE [Concomitant]
     Route: 048
  5. DILAUDID [Concomitant]
     Route: 042
  6. COENZYME Q10 [Concomitant]
     Route: 048
  7. TAMSULOSIN HCL [Concomitant]
     Route: 048
  8. FUROSEMIDE [Concomitant]
     Route: 048
  9. TYSABRI [Suspect]
     Indication: MULTIPLE SCLEROSIS
     Route: 042
     Dates: start: 20070327, end: 20100903
  10. CHOLECALCIFEROL [Concomitant]
     Route: 048
  11. AVONEX [Concomitant]
     Indication: MULTIPLE SCLEROSIS
     Route: 030
  12. MULTI-VITAMIN [Concomitant]
  13. OMEPRAZOLE [Concomitant]
     Route: 048
  14. TEMAZEPAM [Concomitant]
     Indication: SLEEP DISORDER
     Route: 048
  15. VIAGRA [Concomitant]
     Route: 048
  16. PROVIGIL [Concomitant]
     Route: 048
  17. CHOLECALCIFEROL [Concomitant]
     Route: 048
  18. VESICARE [Concomitant]
     Route: 048
  19. HYDROCHLOROTHIAZIDE [Concomitant]
     Route: 048
  20. ASPIRIN [Concomitant]
     Route: 048
  21. PRAVACHOL [Concomitant]
     Route: 048
  22. TIZANIDINE HCL [Concomitant]
     Route: 048
  23. VITAMIN B COMPLEX CAP [Concomitant]
  24. CALCIUM [Concomitant]
     Route: 048
  25. METOPROLOL TARTRATE [Concomitant]
     Route: 048

REACTIONS (3)
  - CLOSTRIDIAL INFECTION [None]
  - URINARY TRACT INFECTION [None]
  - MULTIPLE SCLEROSIS RELAPSE [None]
